FAERS Safety Report 17498913 (Version 1)
Quarter: 2020Q1

REPORT INFORMATION
  Report Type: Spontaneous
  Country: GB (occurrence: GB)
  Receive Date: 20200304
  Receipt Date: 20200304
  Transmission Date: 20200409
  Serious: Yes (Disabling, Other)
  Sender: FDA-Public Use
  Company Number: GB-GILEAD-2020-0453405

PATIENT
  Age: 62 Year
  Sex: Male
  Weight: 84 kg

DRUGS (2)
  1. DESCOVY [Suspect]
     Active Substance: EMTRICITABINE\TENOFOVIR ALAFENAMIDE FUMARATE
     Indication: HIV INFECTION
     Dosage: 1 DOSAGE FORM
     Route: 048
     Dates: start: 20170427
  2. RALTEGRAVIR. [Concomitant]
     Active Substance: RALTEGRAVIR
     Indication: HIV INFECTION

REACTIONS (2)
  - Diabetes mellitus [Not Recovered/Not Resolved]
  - Abnormal weight gain [Not Recovered/Not Resolved]

NARRATIVE: CASE EVENT DATE: 20171012
